FAERS Safety Report 9921934 (Version 1)
Quarter: 2014Q1

REPORT INFORMATION
  Report Type: Spontaneous
  Country: US (occurrence: None)
  Receive Date: 20140221
  Receipt Date: 20140221
  Transmission Date: 20141002
  Serious: Yes (Other)
  Sender: FDA-Public Use
  Company Number: None

PATIENT
  Age: 49 Year
  Sex: Female
  Weight: 56.7 kg

DRUGS (1)
  1. FLUOXETINE 20MG [Suspect]
     Indication: DEPRESSION
     Route: 048
     Dates: start: 20140201, end: 20140219

REACTIONS (4)
  - Product substitution issue [None]
  - Depression [None]
  - Disease recurrence [None]
  - Product quality issue [None]
